FAERS Safety Report 6373115-9 (Version None)
Quarter: 2009Q3

REPORT INFORMATION
  Report Type: 
  Country: None (occurrence: None)
  Receive Date: 20090924
  Receipt Date: 20090204
  Transmission Date: 20100115
  Serious: Yes (Other)
  Sender: FDA-Public Use
  Company Number: US-ASTRAZENECA-2009UW03318

PATIENT
  Age: 49 Year
  Sex: Female
  Weight: 72.6 kg

DRUGS (1)
  1. SEROQUEL [Suspect]
     Route: 048
     Dates: start: 20080701

REACTIONS (1)
  - PANCREATITIS [None]
